FAERS Safety Report 8464904-5 (Version None)
Quarter: 2012Q2

REPORT INFORMATION
  Report Type: 
  Country: None (occurrence: None)
  Receive Date: 20120323
  Receipt Date: 20111110
  Transmission Date: 20120825
  Serious: Yes (Life-Threatening, Hospitalization)
  Sender: FDA-Public Use
  Company Number: 163-21880-11093438

PATIENT
  Age: 76 Year
  Sex: Female
  Weight: 107.9561 kg

DRUGS (15)
  1. ATENOLOL [Concomitant]
  2. KLOR-CON [Concomitant]
  3. DEXAMETHASONE [Concomitant]
  4. ARTHROTEC [Concomitant]
  5. CYMBALTA [Concomitant]
  6. NORVASC [Concomitant]
  7. OSCAL 500 + D (CALCITE D) [Concomitant]
  8. ASPIRIN [Concomitant]
  9. VITAMIN D [Concomitant]
  10. FLUCONAZOLE [Concomitant]
  11. REVLIMID [Suspect]
     Indication: MULTIPLE MYELOMA
     Dosage: 5 MG, 1 IN 1 D, PO
     Route: 048
     Dates: start: 20110601, end: 20110901
  12. OXYCODONE HCL [Concomitant]
  13. OMEPRAZOLE [Concomitant]
  14. PLAVIX [Concomitant]
  15. PRANDIN [Concomitant]

REACTIONS (2)
  - DYSPNOEA [None]
  - PULMONARY EMBOLISM [None]
